FAERS Safety Report 8958611 (Version 1)
Quarter: 2012Q4

REPORT INFORMATION
  Report Type: Spontaneous
  Country: US (occurrence: None)
  Receive Date: 20121206
  Receipt Date: 20121206
  Transmission Date: 20130627
  Serious: Yes (Life-Threatening, Other)
  Sender: FDA-Public Use
  Company Number: None

PATIENT
  Age: 35 Year
  Sex: Male
  Weight: 84.82 kg

DRUGS (3)
  1. OLANZEPINE [Suspect]
     Indication: SCHIZOPHRENIA
     Dosage: 500 mg 4 times a day po
     Route: 048
     Dates: start: 20120705, end: 20121127
  2. OLANZEPINE [Suspect]
     Indication: PSYCHOTIC DISORDER
     Dosage: 500 mg 4 times a day po
     Route: 048
     Dates: start: 20120705, end: 20121127
  3. ZYPREXA [Concomitant]

REACTIONS (3)
  - Wrong drug administered [None]
  - Drug prescribing error [None]
  - Drug name confusion [None]
